FAERS Safety Report 9518010 (Version 1)
Quarter: 2013Q3

REPORT INFORMATION
  Report Type: Spontaneous
  Country: US (occurrence: US)
  Receive Date: 20130912
  Receipt Date: 20130912
  Transmission Date: 20140515
  Serious: No
  Sender: FDA-Public Use
  Company Number: US-PFIZER INC-2013261565

PATIENT
  Age: 60 Year
  Sex: Female
  Weight: 104 kg

DRUGS (4)
  1. XELJANZ [Suspect]
     Indication: RHEUMATOID ARTHRITIS
     Dosage: 5 MG, 2X/DAY
     Dates: start: 20130907, end: 20130907
  2. METFORMIN [Concomitant]
     Indication: DIABETES MELLITUS
     Dosage: 1X/DAY
  3. XODOL [Concomitant]
     Indication: FIBROMYALGIA
     Dosage: 10MG (HYDROCODONE BITARTRATE) /300MG (ACETAMINOPHEN), 5X/DAY
  4. OXYCONTIN [Concomitant]
     Indication: FIBROMYALGIA
     Dosage: 40 MG, 2X/DAY

REACTIONS (1)
  - Bronchitis [Unknown]
